FAERS Safety Report 6028532-3 (Version None)
Quarter: 2008Q4

REPORT INFORMATION
  Report Type: 
  Country: None (occurrence: None)
  Receive Date: 20081222
  Receipt Date: 20081027
  Transmission Date: 20090506
  Serious: No
  Sender: FDA-Public Use
  Company Number: US-WYE-H06590508

PATIENT
  Age: 82 Year
  Sex: Male
  Weight: 79.45 kg

DRUGS (11)
  1. PRISTIQ [Suspect]
     Indication: DEPRESSION
     Dosage: 50 MG 1X PER 1 DAY, ORAL
     Route: 048
     Dates: start: 20080901
  2. ENALAPRIL MALEATE [Concomitant]
  3. FUROSEMIDE (FUROSEMIDE) [Concomitant]
  4. ATENOLOL [Concomitant]
  5. PLAVIX [Concomitant]
  6. PRANDIN [Concomitant]
  7. OMEPRAZOLE [Concomitant]
  8. FOLIC ACID [Concomitant]
  9. POTASSIUM (POTASSIUM) [Concomitant]
  10. ASPIRIN [Concomitant]
  11. ALLOPURINOL [Concomitant]

REACTIONS (5)
  - OEDEMA MOUTH [None]
  - PRURITUS [None]
  - SKIN ATROPHY [None]
  - SKIN DISCOLOURATION [None]
  - SKIN HAEMORRHAGE [None]
